FAERS Safety Report 7242790-9 (Version None)
Quarter: 2011Q1

REPORT INFORMATION
  Report Type: 
  Country: None (occurrence: None)
  Receive Date: 20110118
  Receipt Date: 20110106
  Transmission Date: 20110831
  Serious: Yes (Hospitalization)
  Sender: FDA-Public Use
  Company Number: 023736

PATIENT
  Sex: Female
  Weight: 64.9 kg

DRUGS (1)
  1. CIMZIA [Suspect]
     Indication: CROHN'S DISEASE
     Dosage: (SUBCUTANEOUS)
     Route: 058
     Dates: start: 20100315

REACTIONS (10)
  - MUSCULOSKELETAL PAIN [None]
  - ULCER [None]
  - NECK PAIN [None]
  - CONSTIPATION [None]
  - WHITE BLOOD CELL COUNT INCREASED [None]
  - MYALGIA [None]
  - CROHN'S DISEASE [None]
  - FOOD POISONING [None]
  - PAIN [None]
  - DIARRHOEA [None]
